FAERS Safety Report 7349361-4 (Version None)
Quarter: 2011Q1

REPORT INFORMATION
  Report Type: 
  Country: None (occurrence: None)
  Receive Date: 20110314
  Receipt Date: 20100317
  Transmission Date: 20110831
  Serious: No
  Sender: FDA-Public Use
  Company Number: US-ABBOTT-10P-163-0633623-00

PATIENT
  Age: 54 Year
  Sex: Female
  Weight: 109.41 kg

DRUGS (3)
  1. DEPAKOTE [Suspect]
     Indication: CONVULSION
     Route: 048
     Dates: start: 20060101
  2. VERAPAMIL [Concomitant]
     Indication: PRODUCT USED FOR UNKNOWN INDICATION
     Route: 048
  3. DYAZIDE [Concomitant]
     Indication: PRODUCT USED FOR UNKNOWN INDICATION
     Dosage: 37.5MG/25 MG ONCE DAILY
     Route: 048

REACTIONS (2)
  - LYMPHOCYTOSIS [None]
  - GRANULOCYTOPENIA [None]
